FAERS Safety Report 18806047 (Version 1)
Quarter: 2021Q1

REPORT INFORMATION
  Report Type: Report from Study
  Country: US (occurrence: US)
  Receive Date: 20210128
  Receipt Date: 20210128
  Transmission Date: 20210419
  Serious: Yes (Other)
  Sender: FDA-Public Use
  Company Number: US-ASTRAZENECA-2021A000308

PATIENT
  Sex: Male
  Weight: 83.9 kg

DRUGS (13)
  1. PANTOPRAZOLE SODIUM. [Concomitant]
     Active Substance: PANTOPRAZOLE SODIUM
  2. VITAMIN C [Concomitant]
     Active Substance: ASCORBIC ACID
  3. CHONDROITIN [Concomitant]
     Active Substance: CHONDROITIN
  4. VITMAIN D3 [Concomitant]
  5. CELEBREX [Concomitant]
     Active Substance: CELECOXIB
  6. GLUCOSAMINE [Concomitant]
     Active Substance: GLUCOSAMINE
  7. QUERCETIN [Concomitant]
     Active Substance: QUERCETIN
  8. KOSELUGO [Suspect]
     Active Substance: SELUMETINIB
     Indication: GASTROINTESTINAL STROMAL TUMOUR
     Route: 048
     Dates: start: 20200428
  9. NORCO [Concomitant]
     Active Substance: ACETAMINOPHEN\HYDROCODONE BITARTRATE
  10. COD LIVER OIL [Concomitant]
     Active Substance: COD LIVER OIL
  11. ELDER BERRY [Concomitant]
  12. GLUTHIONE [Concomitant]
  13. ZINC SULFATE. [Concomitant]
     Active Substance: ZINC SULFATE

REACTIONS (2)
  - Blood creatine phosphokinase increased [Unknown]
  - Cardiac disorder [Unknown]
